APPROVED DRUG PRODUCT: GLYCORT
Active Ingredient: HYDROCORTISONE
Strength: 1%
Dosage Form/Route: LOTION;TOPICAL
Application: A087489 | Product #001
Applicant: HERAN PHARMACEUTICAL INC
Approved: Oct 3, 1983 | RLD: No | RS: No | Type: DISCN